FAERS Safety Report 4538319-6 (Version None)
Quarter: 2004Q4

REPORT INFORMATION
  Report Type: 
  Country: None (occurrence: None)
  Receive Date: 20041223
  Receipt Date: 20040123
  Transmission Date: 20050328
  Serious: Yes (Hospitalization)
  Sender: FDA-Public Use
  Company Number: 6007066

PATIENT
  Age: 62 Year
  Sex: Female

DRUGS (6)
  1. AZATIOPRIN NM 50 MG(50 MG, TABLETS) (AZATHIOPRINE) [Suspect]
     Indication: HEPATITIS
     Dosage: 100 MG ORAL
     Route: 048
     Dates: start: 19930101, end: 20030920
  2. SALURES-K (BENDROFLUMETHIAZIDE, POTASSIUM CHLORIDE) [Concomitant]
  3. AMILORIDE (AMILORIDE) [Concomitant]
  4. PREDNISOLONE [Concomitant]
  5. TENORMIN [Concomitant]
  6. POTASSIUM [Concomitant]

REACTIONS (5)
  - ATRIOVENTRICULAR BLOCK SECOND DEGREE [None]
  - BUNDLE BRANCH BLOCK LEFT [None]
  - CARDIAC ARREST [None]
  - RESUSCITATION [None]
  - VENTRICULAR FIBRILLATION [None]
